FAERS Safety Report 25597866 (Version 1)
Quarter: 2025Q3

REPORT INFORMATION
  Report Type: Spontaneous
  Country: GB (occurrence: GB)
  Receive Date: 20250723
  Receipt Date: 20250723
  Transmission Date: 20251020
  Serious: Yes (Hospitalization, Other)
  Sender: PFIZER
  Company Number: GB-JAZZ PHARMACEUTICALS-2024-GB-000014

PATIENT
  Age: 56 Year
  Sex: Female
  Weight: 65 kg

DRUGS (19)
  1. OXALIPLATIN [Suspect]
     Active Substance: OXALIPLATIN
     Indication: Oesophageal adenocarcinoma
     Route: 042
     Dates: start: 20231229, end: 20231229
  2. OXALIPLATIN [Suspect]
     Active Substance: OXALIPLATIN
     Route: 042
     Dates: start: 20231229, end: 20231229
  3. OXALIPLATIN [Suspect]
     Active Substance: OXALIPLATIN
     Route: 042
     Dates: start: 20231229
  4. ZANIDATAMAB [Suspect]
     Active Substance: ZANIDATAMAB
     Indication: Oesophageal adenocarcinoma
     Dosage: (DAY 1 OF THE FIRST 21-DAY CYCLE)
     Route: 042
     Dates: start: 20231229
  5. LOPERAMIDE [Suspect]
     Active Substance: LOPERAMIDE
     Indication: Prophylaxis
     Dosage: 16 MG, 1X/DAY (CYCLE1, DAY1)
     Dates: start: 20231229
  6. LOPERAMIDE [Suspect]
     Active Substance: LOPERAMIDE
     Dosage: 4 MG, 2X/DAY (CYCLE1, DAY1)
     Dates: start: 20231229
  7. DEXAMETHASONE [Concomitant]
     Active Substance: DEXAMETHASONE
     Indication: Myalgia
     Dosage: 1 MG, 1X/DAY
     Dates: start: 20231109, end: 20231215
  8. PREGABALIN [Concomitant]
     Active Substance: PREGABALIN
     Indication: Myalgia
     Dosage: 100 MG, 1X/DAY
     Dates: start: 20230811
  9. CELECOXIB [Concomitant]
     Active Substance: CELECOXIB
  10. MORPHINE SULFATE [Concomitant]
     Active Substance: MORPHINE SULFATE
     Indication: Myalgia
     Dosage: 70 MG, 2X/DAY
     Dates: start: 20231015
  11. OMEPRAZOLE [Concomitant]
     Active Substance: OMEPRAZOLE
     Indication: Gastrooesophageal reflux disease
     Dosage: 20 MG, 1X/DAY
     Dates: start: 20210107
  12. AMINOPHYLLINE [Concomitant]
     Active Substance: AMINOPHYLLINE
  13. ACETAMINOPHEN [Concomitant]
     Active Substance: ACETAMINOPHEN
     Indication: Myalgia
     Dosage: 1 G, 1X/DAY
     Dates: start: 20180101
  14. FORCEVAL [AMINO ACIDS NOS;ELECTROLYTES NOS;FERROUS FUMARATE;NICOTINAMI [Concomitant]
     Indication: Supplementation therapy
     Dosage: 1 DF, 1X/DAY
     Dates: start: 20180101
  15. POLYETHYLENE GLYCOL 3350\POTASSIUM CHLORIDE\SODIUM BICARBONATE\SODIUM [Concomitant]
     Active Substance: POLYETHYLENE GLYCOL 3350\POTASSIUM CHLORIDE\SODIUM BICARBONATE\SODIUM CHLORIDE
     Indication: Constipation
     Dates: start: 20180101
  16. ALGINIC ACID\ALUMINUM HYDROXIDE\MAGNESIUM TRISILICATE [Concomitant]
     Active Substance: ALGINIC ACID\ALUMINUM HYDROXIDE\MAGNESIUM TRISILICATE
     Indication: Dyspepsia
     Dates: start: 20230101
  17. DOCUSATE SODIUM [Concomitant]
     Active Substance: DOCUSATE SODIUM
     Indication: Constipation
     Dates: start: 20231119
  18. VITAMIN B12 [Concomitant]
     Active Substance: CYANOCOBALAMIN
     Indication: Gastrectomy
     Dosage: 1 DF, EVERY 3 MONTHS (MILLIGRAM PER MILLILITRE)
     Dates: start: 20180101
  19. MEDI DERM RX [Concomitant]
     Indication: Decubitus ulcer
     Route: 061
     Dates: start: 20230512

REACTIONS (1)
  - Infusion related reaction [Recovered/Resolved]

NARRATIVE: CASE EVENT DATE: 20231229
